FAERS Safety Report 6741948-2 (Version None)
Quarter: 2010Q2

REPORT INFORMATION
  Report Type: 
  Country: None (occurrence: None)
  Receive Date: 20100526
  Receipt Date: 20100520
  Transmission Date: 20101027
  Serious: Yes (Hospitalization)
  Sender: FDA-Public Use
  Company Number: B0657087A

PATIENT
  Sex: Female

DRUGS (2)
  1. SEREUPIN [Suspect]
     Indication: DEPRESSION
     Dosage: 560MG PER DAY
     Route: 048
     Dates: start: 20100319, end: 20100319
  2. ALPRAZOLAM [Suspect]
     Indication: DEPRESSION
     Dosage: 5MG PER DAY
     Route: 048
     Dates: start: 20100319, end: 20100319

REACTIONS (1)
  - POISONING [None]
